FAERS Safety Report 11180697 (Version 1)
Quarter: 2015Q2

REPORT INFORMATION
  Report Type: Report from Study
  Country: FR (occurrence: FR)
  Receive Date: 20150611
  Receipt Date: 20150611
  Transmission Date: 20150821
  Serious: Yes (Hospitalization)
  Sender: FDA-Public Use
  Company Number: FR-GLAXOSMITHKLINE-FR2015GSK080496

PATIENT
  Age: 36 Year
  Sex: Male

DRUGS (7)
  1. NICORANDIL [Concomitant]
     Active Substance: NICORANDIL
  2. RAMIPRIL. [Concomitant]
     Active Substance: RAMIPRIL
  3. TINZAPARIN [Concomitant]
     Active Substance: TINZAPARIN
  4. OMEGA 3 [Suspect]
     Active Substance: OMEGA-3 FATTY ACIDS
     Indication: ISCHAEMIC HEART DISEASE PROPHYLAXIS
     Dosage: UNK
     Dates: start: 20061020
  5. OMEGA-3-ACID ETHYL ESTERS. [Suspect]
     Active Substance: OMEGA-3-ACID ETHYL ESTERS
     Indication: ISCHAEMIC HEART DISEASE PROPHYLAXIS
     Dosage: UNK
     Dates: start: 20061025, end: 20070420
  6. BISOPROLOL [Concomitant]
     Active Substance: BISOPROLOL
  7. CLOPIDOGREL [Concomitant]
     Active Substance: CLOPIDOGREL BISULFATE

REACTIONS (2)
  - Blood urine present [Unknown]
  - Renal disorder [Unknown]

NARRATIVE: CASE EVENT DATE: 200806
